FAERS Safety Report 18958325 (Version 1)
Quarter: 2021Q1

REPORT INFORMATION
  Report Type: Spontaneous
  Country: US (occurrence: US)
  Receive Date: 20210302
  Receipt Date: 20210302
  Transmission Date: 20210420
  Serious: Yes (Life-Threatening, Hospitalization)
  Sender: FDA-Public Use
  Company Number: US-MYLANLABS-2021M1012505

PATIENT
  Sex: Male

DRUGS (8)
  1. BUPROPION. [Interacting]
     Active Substance: BUPROPION
     Indication: BIPOLAR DISORDER
     Dosage: 300 MILLIGRAM DAILY
     Route: 064
  2. QUETIAPINE. [Interacting]
     Active Substance: QUETIAPINE
     Indication: BIPOLAR DISORDER
     Dosage: 200 MILLIGRAM
     Route: 064
  3. VENLAFAXINE [Interacting]
     Active Substance: VENLAFAXINE HYDROCHLORIDE
     Indication: POST-TRAUMATIC STRESS DISORDER
  4. VENLAFAXINE [Suspect]
     Active Substance: VENLAFAXINE HYDROCHLORIDE
     Indication: BIPOLAR DISORDER
     Dosage: MATERNAL DOSE OF 150MG DAILY
     Route: 064
  5. BUPROPION. [Interacting]
     Active Substance: BUPROPION
     Indication: POST-TRAUMATIC STRESS DISORDER
  6. QUETIAPINE. [Interacting]
     Active Substance: QUETIAPINE
     Indication: POST-TRAUMATIC STRESS DISORDER
  7. GABAPENTIN. [Suspect]
     Active Substance: GABAPENTIN
     Indication: POST-TRAUMATIC STRESS DISORDER
  8. GABAPENTIN. [Suspect]
     Active Substance: GABAPENTIN
     Indication: BIPOLAR DISORDER
     Dosage: 1200 MILLIGRAM, TID
     Route: 064

REACTIONS (9)
  - Encephalopathy [Recovered/Resolved]
  - Drug interaction [Recovered/Resolved]
  - Foetal exposure during pregnancy [Recovered/Resolved]
  - Hyperreflexia [Recovered/Resolved]
  - Hypertonia [Recovered/Resolved]
  - Toxicity to various agents [Recovered/Resolved]
  - Off label use [Unknown]
  - Drug level increased [Recovered/Resolved]
  - Dyskinesia [Recovered/Resolved]
